APPROVED DRUG PRODUCT: CLONAZEPAM
Active Ingredient: CLONAZEPAM
Strength: 2MG
Dosage Form/Route: TABLET, ORALLY DISINTEGRATING;ORAL
Application: A077171 | Product #005 | TE Code: AB
Applicant: PH HEALTH LTD
Approved: Aug 3, 2005 | RLD: No | RS: No | Type: RX